FAERS Safety Report 9422991 (Version 2)
Quarter: 2014Q3

REPORT INFORMATION
  Report Type: Spontaneous
  Country: US (occurrence: US)
  Receive Date: 20130726
  Receipt Date: 20140721
  Transmission Date: 20150326
  Serious: Yes (Death)
  Sender: FDA-Public Use
  Company Number: US-GLAXOSMITHKLINE-A0797801A

PATIENT
  Age: 54 Year
  Sex: Male

DRUGS (1)
  1. AVANDIA [Suspect]
     Active Substance: ROSIGLITAZONE MALEATE
     Indication: DIABETES MELLITUS
     Route: 048
     Dates: start: 200205, end: 200708

REACTIONS (4)
  - Diabetic retinal oedema [Unknown]
  - Diabetic retinopathy [Unknown]
  - Death [Fatal]
  - Vision blurred [Unknown]

NARRATIVE: CASE EVENT DATE: 200801
